FAERS Safety Report 7791844-7 (Version None)
Quarter: 2011Q4

REPORT INFORMATION
  Report Type: 
  Country: None (occurrence: None)
  Receive Date: 20111003
  Receipt Date: 20110920
  Transmission Date: 20120403
  Serious: Yes (Hospitalization)
  Sender: FDA-Public Use
  Company Number: US-BAYER-2011-052741

PATIENT
  Age: 22 Year
  Sex: Female
  Weight: 57.143 kg

DRUGS (8)
  1. IMITREX [Concomitant]
     Indication: MIGRAINE
     Dosage: UNK
     Route: 048
     Dates: start: 20070823
  2. MIGRIN-A [Concomitant]
     Indication: MIGRAINE
     Dosage: UNK
     Route: 048
     Dates: start: 20060912
  3. YAZ [Suspect]
     Indication: ACNE
     Dosage: UNK
     Dates: start: 20070101, end: 20070101
  4. YAZ [Suspect]
     Indication: PREMENSTRUAL SYNDROME
  5. VICODIN [Concomitant]
     Indication: DYSMENORRHOEA
     Dosage: 500 MG, Q4HR
     Route: 048
     Dates: start: 20070804, end: 20070827
  6. MAXALT [Concomitant]
     Indication: MIGRAINE
     Dosage: UNK
     Route: 048
     Dates: start: 20070823
  7. WELLTRAN [Concomitant]
     Indication: MIGRAINE
     Dosage: UNK
     Route: 048
     Dates: start: 20070823
  8. AMITRIPTYLINE HCL [Concomitant]
     Dosage: 10 MG, UNK
     Route: 048
     Dates: start: 20060912

REACTIONS (3)
  - PAIN [None]
  - PULMONARY EMBOLISM [None]
  - INJURY [None]
